FAERS Safety Report 4790820-6 (Version None)
Quarter: 2005Q3

REPORT INFORMATION
  Report Type: 
  Country: None (occurrence: None)
  Receive Date: 20050914
  Receipt Date: 20040924
  Transmission Date: 20060218
  Serious: Yes (Death, Hospitalization)
  Sender: FDA-Public Use
  Company Number: 163-20785-04090631

PATIENT
  Age: 70 Year
  Sex: Male

DRUGS (3)
  1. THALOMID [Suspect]
     Indication: PANCREATIC CARCINOMA
     Dosage: 300 MG, DAILY, ORAL
     Route: 049
     Dates: start: 20040817, end: 20040922
  2. GEMCITABINE (GEMCITABINE) [Suspect]
     Indication: PANCREATIC CARCINOMA
  3. DIURETICS [Concomitant]

REACTIONS (5)
  - DEATH [None]
  - DEHYDRATION [None]
  - DISEASE PROGRESSION [None]
  - NAUSEA [None]
  - VOMITING [None]
